FAERS Safety Report 22318302 (Version 2)
Quarter: 2023Q4

REPORT INFORMATION
  Report Type: Other
  Country: IN (occurrence: None)
  Receive Date: 20230515
  Receipt Date: 20231205
  Transmission Date: 20240110
  Serious: Yes (Other)
  Sender: FDA-Public Use
  Company Number: IN-ROCHE-3346987

PATIENT
  Age: 53 Year
  Sex: Male

DRUGS (1)
  1. ALECENSA [Suspect]
     Active Substance: ALECTINIB HYDROCHLORIDE
     Indication: Lung neoplasm malignant
     Dosage: EXPIRY DATE JUN/2025
     Route: 048
     Dates: start: 20220824

REACTIONS (5)
  - Cerebellar calcification [Unknown]
  - Back pain [Unknown]
  - Dyspnoea [Unknown]
  - Weight decreased [Unknown]
  - Asthenia [Unknown]
